FAERS Safety Report 10556030 (Version 2)
Quarter: 2014Q4

REPORT INFORMATION
  Report Type: Spontaneous
  Country: US (occurrence: US)
  Receive Date: 20141030
  Receipt Date: 20141211
  Transmission Date: 20150529
  Serious: No
  Sender: FDA-Public Use
  Company Number: US-AMGEN-USASP2014083632

PATIENT
  Age: 39 Year
  Sex: Female
  Weight: 114.7 kg

DRUGS (7)
  1. PRINIVIL [Concomitant]
     Active Substance: LISINOPRIL
     Dosage: 10 MG, TAKE 1 TABLET BY MOUTH ONCE DAILY
     Route: 048
  2. ORTHO MICRONOR [Concomitant]
     Active Substance: NORETHINDRONE
     Dosage: 0.35 MG, TAKE 1 TABLET BY MOUTH ONCE DAILY
     Route: 048
  3. PROVENTIL HFA                      /00139502/ [Concomitant]
     Dosage: 90 MUG/ACTUATION, INHALE 1-2 PUFFS EVERY 4 HOURS AS NEEDED (COUGH OR SHORTNESS OF BREATH)
  4. ULTRAM ER [Concomitant]
     Active Substance: TRAMADOL HYDROCHLORIDE
     Dosage: 100 MG, TAKE 1-2 TABLETS BY MOUTH ONCE DAILY, TAKE AT NIGHT FOR HIP PAIN
     Route: 048
  5. ENBREL [Suspect]
     Active Substance: ETANERCEPT
     Indication: ANKYLOSING SPONDYLITIS
     Dosage: 50 MG, QWK
     Route: 058
     Dates: start: 20130813
  6. TRAMADOL                           /00599202/ [Concomitant]
     Active Substance: TRAMADOL
     Dosage: TAKE 200 MG BY MOUTH ONCE DAILY AS NEEDED
  7. LAMISIL                            /00992602/ [Concomitant]
     Dosage: 250 MG, TAKE 1 TABLET BY MOUTH ONCE DAILY

REACTIONS (3)
  - Malaise [Unknown]
  - Dizziness [Unknown]
  - Headache [Unknown]

NARRATIVE: CASE EVENT DATE: 201410
